FAERS Safety Report 7801985-3 (Version None)
Quarter: 2011Q4

REPORT INFORMATION
  Report Type: 
  Country: None (occurrence: None)
  Receive Date: 20111007
  Receipt Date: 20110927
  Transmission Date: 20120403
  Serious: No
  Sender: FDA-Public Use
  Company Number: PHHY2011JP87759

PATIENT
  Sex: Female

DRUGS (3)
  1. BACCIDAL [Concomitant]
     Indication: ABDOMINAL PAIN
     Dosage: UNK
     Route: 048
  2. LAMISIL [Suspect]
     Dosage: UNK
     Route: 048
  3. BIOFERMIN [Concomitant]
     Indication: DIARRHOEA
     Dosage: UNK
     Route: 048

REACTIONS (2)
  - ABDOMINAL PAIN [None]
  - WRONG DRUG ADMINISTERED [None]
